FAERS Safety Report 4330351-0 (Version None)
Quarter: 2004Q1

REPORT INFORMATION
  Report Type: 
  Country: None (occurrence: None)
  Receive Date: 20040329
  Receipt Date: 20040317
  Transmission Date: 20041129
  Serious: Yes (Hospitalization)
  Sender: FDA-Public Use
  Company Number: 2004015525

PATIENT
  Age: 77 Year
  Sex: Male
  Weight: 77 kg

DRUGS (6)
  1. NEURONTIN [Suspect]
     Indication: ILL-DEFINED DISORDER
  2. PIRETANIDE (PIRETANIDE) [Concomitant]
  3. METOPROLOL TARTRATE [Concomitant]
  4. NITROGLYCERIN [Concomitant]
  5. MOLSIDOMINE (MOLSIDOMINE) [Concomitant]
  6. CLOPIDOGREL BISULFATE [Concomitant]

REACTIONS (2)
  - MALAISE [None]
  - PALPITATIONS [None]
